FAERS Safety Report 12332104 (Version 1)
Quarter: 2016Q2

REPORT INFORMATION
  Report Type: Spontaneous
  Country: US (occurrence: US)
  Receive Date: 20160504
  Receipt Date: 20160504
  Transmission Date: 20160815
  Serious: Yes (Hospitalization)
  Sender: FDA-Public Use
  Company Number: US-ROXANE LABORATORIES, INC.-2016-RO-00801RO

PATIENT
  Age: 77 Year
  Sex: Female
  Weight: 54.43 kg

DRUGS (9)
  1. PREDNISONE TABLETS USP, 5MG [Suspect]
     Active Substance: PREDNISONE
     Indication: PULMONARY HAEMORRHAGE
     Dosage: 10 MG
     Route: 048
     Dates: start: 20150901, end: 20150904
  2. NORVASC [Concomitant]
     Active Substance: AMLODIPINE BESYLATE
     Route: 065
     Dates: start: 20130820
  3. INCB039110 [Suspect]
     Active Substance: INVESTIGATIONAL PRODUCT
     Indication: MYELOFIBROSIS
     Dosage: 600 MG
     Route: 048
     Dates: start: 20130815, end: 20150812
  4. CALCITROL [Concomitant]
     Active Substance: CALCITRIOL
     Route: 065
     Dates: start: 20121024
  5. ULORIC [Concomitant]
     Active Substance: FEBUXOSTAT
     Route: 065
     Dates: start: 201105
  6. LASIX [Concomitant]
     Active Substance: FUROSEMIDE
     Route: 065
     Dates: start: 2014
  7. LISINOPRIL. [Concomitant]
     Active Substance: LISINOPRIL
     Route: 065
     Dates: start: 20130411
  8. LIPITOR [Concomitant]
     Active Substance: ATORVASTATIN CALCIUM
     Route: 065
     Dates: start: 2002
  9. COREG [Concomitant]
     Active Substance: CARVEDILOL
     Route: 065
     Dates: start: 2011

REACTIONS (1)
  - Leukocytosis [Recovered/Resolved]

NARRATIVE: CASE EVENT DATE: 20150905
